FAERS Safety Report 20332383 (Version 1)
Quarter: 2022Q1

REPORT INFORMATION
  Report Type: Spontaneous
  Country: US (occurrence: None)
  Receive Date: 20220113
  Receipt Date: 20220113
  Transmission Date: 20220423
  Serious: Yes (Hospitalization)
  Sender: FDA-Public Use
  Company Number: 2022A008623

PATIENT
  Age: 693 Month
  Sex: Male
  Weight: 138.3 kg

DRUGS (2)
  1. BUDESONIDE\FORMOTEROL\GLYCOPYRRONIUM [Suspect]
     Active Substance: BUDESONIDE\FORMOTEROL\GLYCOPYRRONIUM
     Indication: Chronic obstructive pulmonary disease
     Route: 055
     Dates: start: 2021
  2. SYMBICORT [Suspect]
     Active Substance: BUDESONIDE\FORMOTEROL FUMARATE DIHYDRATE
     Indication: Asthma
     Dosage: TWO TIMES A DAY
     Route: 055
     Dates: end: 2021

REACTIONS (8)
  - Loss of consciousness [Recovered/Resolved]
  - Sneezing [Recovered/Resolved]
  - Dyspnoea [Unknown]
  - Chronic obstructive pulmonary disease [Not Recovered/Not Resolved]
  - Weight decreased [Unknown]
  - Wrong technique in device usage process [Unknown]
  - Device malfunction [Unknown]
  - Device use issue [Recovered/Resolved]

NARRATIVE: CASE EVENT DATE: 20210101
